FAERS Safety Report 22124829 (Version 1)
Quarter: 2023Q1

REPORT INFORMATION
  Report Type: Spontaneous
  Country: US (occurrence: US)
  Receive Date: 20230322
  Receipt Date: 20230322
  Transmission Date: 20230417
  Serious: Yes (Other)
  Sender: FDA-Public Use
  Company Number: US-NOVOPROD-1039868

PATIENT
  Age: 46 Year
  Sex: Female

DRUGS (1)
  1. WEGOVY [Suspect]
     Active Substance: SEMAGLUTIDE
     Indication: Product used for unknown indication
     Dosage: UNK
     Route: 058
     Dates: start: 2021

REACTIONS (3)
  - Gastrointestinal stromal tumour [Recovered/Resolved]
  - Gun shot wound [Recovered/Resolved]
  - Gallbladder cholesterolosis [Recovered/Resolved]

NARRATIVE: CASE EVENT DATE: 20210101
